FAERS Safety Report 14259995 (Version 1)
Quarter: 2017Q4

REPORT INFORMATION
  Report Type: Spontaneous
  Country: US (occurrence: US)
  Receive Date: 20171207
  Receipt Date: 20171207
  Transmission Date: 20180321
  Serious: No
  Sender: FDA-Public Use
  Company Number: US-VIFOR (INTERNATIONAL) INC.-VIT-2017-10902

PATIENT
  Age: 76 Year
  Sex: Male

DRUGS (3)
  1. VELTASSA [Suspect]
     Active Substance: PATIROMER
  2. LISINOPRIL. [Concomitant]
     Active Substance: LISINOPRIL
  3. TOPROL XL [Concomitant]
     Active Substance: METOPROLOL SUCCINATE

REACTIONS (3)
  - Blood magnesium decreased [Unknown]
  - Diarrhoea [Unknown]
  - Drug ineffective [Unknown]
